FAERS Safety Report 5242235-4 (Version None)
Quarter: 2007Q1

REPORT INFORMATION
  Report Type: 
  Country: None (occurrence: None)
  Receive Date: 20070215
  Receipt Date: 20070215
  Transmission Date: 20070707
  Serious: Yes (Death)
  Sender: FDA-Public Use
  Company Number: None

PATIENT
  Sex: Male
  Weight: 27.2158 kg

DRUGS (1)
  1. LORATADINE [Suspect]
     Indication: HYPERSENSITIVITY
     Dosage: 10 MG ONCE PER DAY PO
     Route: 048
     Dates: start: 20040801, end: 20060110

REACTIONS (3)
  - DRUG LEVEL INCREASED [None]
  - FATIGUE [None]
  - VOMITING [None]
